FAERS Safety Report 9685352 (Version 2)
Quarter: 2013Q4

REPORT INFORMATION
  Report Type: Report from Study
  Country: CA (occurrence: CA)
  Receive Date: 20131113
  Receipt Date: 20131212
  Transmission Date: 20140711
  Serious: Yes (Other)
  Sender: FDA-Public Use
  Company Number: PHHY2013CA127395

PATIENT
  Age: 45 Year
  Sex: Male

DRUGS (1)
  1. GILENYA [Suspect]
     Indication: RELAPSING-REMITTING MULTIPLE SCLEROSIS
     Dosage: 0.5 MG, QD
     Route: 048
     Dates: start: 20131015

REACTIONS (4)
  - Electrocardiogram abnormal [Unknown]
  - Ventricular hypertrophy [Unknown]
  - Right atrial dilatation [Unknown]
  - Sick sinus syndrome [Unknown]
